FAERS Safety Report 7037492-8 (Version None)
Quarter: 2010Q4

REPORT INFORMATION
  Report Type: 
  Country: None (occurrence: None)
  Receive Date: 20101011
  Receipt Date: 20101004
  Transmission Date: 20110411
  Serious: Yes (Hospitalization)
  Sender: FDA-Public Use
  Company Number: A0885502A

PATIENT
  Age: 41 Year
  Sex: Female

DRUGS (11)
  1. ROSIGLITAZONE [Suspect]
     Route: 048
     Dates: start: 20100902
  2. STUDY MEDICATION [Suspect]
     Indication: NEOPLASM MALIGNANT
     Dates: start: 20091010, end: 20100723
  3. COMPAZINE [Concomitant]
     Dates: start: 20080829
  4. ACETAMINOPHEN AND HYDROCODONE BITARTRATE [Concomitant]
     Dates: start: 20100722
  5. LACTULOSE [Concomitant]
     Dates: start: 20100809
  6. LORAZEPAM [Concomitant]
     Dates: start: 20081219
  7. MEGACE [Concomitant]
     Dates: start: 20100827
  8. OXYCODONE [Concomitant]
     Dates: start: 20100803
  9. OXYCONTIN [Concomitant]
     Dates: start: 20100901
  10. MONOBASIC POTASSIUM PHOSPHATE [Concomitant]
     Dates: start: 20100108
  11. PRILOSEC [Concomitant]

REACTIONS (9)
  - ABDOMINAL DISCOMFORT [None]
  - ASTHENIA [None]
  - CONSTIPATION [None]
  - DECREASED APPETITE [None]
  - DEPRESSED MOOD [None]
  - FATIGUE [None]
  - INSOMNIA [None]
  - PALPITATIONS [None]
  - VOMITING [None]
